FAERS Safety Report 5836723-7 (Version None)
Quarter: 2008Q3

REPORT INFORMATION
  Report Type: 
  Country: None (occurrence: None)
  Receive Date: 20080807
  Receipt Date: 20080717
  Transmission Date: 20090109
  Serious: No
  Sender: FDA-Public Use
  Company Number: US-ASTRAZENECA-2008UW00352

PATIENT
  Age: 44 Year
  Sex: Male
  Weight: 156.5 kg

DRUGS (6)
  1. SEROQUEL [Suspect]
     Indication: BIPOLAR DISORDER
     Route: 048
     Dates: start: 20030101, end: 20060101
  2. SEROQUEL [Suspect]
     Route: 048
     Dates: start: 20030101, end: 20060101
  3. SEROQUEL [Suspect]
     Route: 048
     Dates: start: 20030101, end: 20060101
  4. ZOLOFT [Concomitant]
     Dates: start: 20050101
  5. ENALAPRIL MALEATE [Concomitant]
     Dates: start: 20060101
  6. REMERON [Concomitant]
     Dates: start: 20050101, end: 20080101

REACTIONS (4)
  - BLOOD CHOLESTEROL INCREASED [None]
  - BLOOD PRESSURE [None]
  - OBESITY [None]
  - TYPE 2 DIABETES MELLITUS [None]
